FAERS Safety Report 6812326-2 (Version None)
Quarter: 2010Q2

REPORT INFORMATION
  Report Type: 
  Country: None (occurrence: None)
  Receive Date: 20100628
  Receipt Date: 20100617
  Transmission Date: 20101027
  Serious: Yes (Other)
  Sender: FDA-Public Use
  Company Number: 010374

PATIENT
  Sex: Female
  Weight: 89 kg

DRUGS (4)
  1. CERTOLIZUMAB PEGOL (CERTOLIZUMAB PEGOL) [Suspect]
     Indication: RHEUMATOID ARTHRITIS
     Dosage: (200 MG 1X/2 WEEKS SUBCUTANEOUS)
     Route: 058
     Dates: start: 20100120, end: 20100301
  2. PREDNISOLONE [Concomitant]
  3. ARCOXIA [Concomitant]
  4. PROCAINE HCL [Concomitant]

REACTIONS (1)
  - ANAPHYLACTIC REACTION [None]
